FAERS Safety Report 14762178 (Version 1)
Quarter: 2018Q2

REPORT INFORMATION
  Report Type: Spontaneous
  Country: US (occurrence: US)
  Receive Date: 20180416
  Receipt Date: 20180416
  Transmission Date: 20180711
  Serious: No
  Sender: FDA-Public Use
  Company Number: US-BION-006966

PATIENT
  Age: 41 Year
  Sex: Male
  Weight: 147 kg

DRUGS (1)
  1. ALEVE [Suspect]
     Active Substance: NAPROXEN SODIUM
     Indication: PAIN
     Route: 048

REACTIONS (5)
  - Glossodynia [Recovered/Resolved]
  - Incorrect dose administered [Not Recovered/Not Resolved]
  - Tongue discomfort [Recovered/Resolved]
  - Expired product administered [Not Recovered/Not Resolved]
  - Product contamination physical [Unknown]

NARRATIVE: CASE EVENT DATE: 20170209
